FAERS Safety Report 25526406 (Version 1)
Quarter: 2025Q3

REPORT INFORMATION
  Report Type: Spontaneous
  Country: EU (occurrence: EU)
  Receive Date: 20250707
  Receipt Date: 20250707
  Transmission Date: 20251020
  Serious: Yes (Other)
  Sender: PFIZER
  Company Number: None

PATIENT
  Age: 22 Year
  Sex: Female

DRUGS (2)
  1. KETAMINE HYDROCHLORIDE [Suspect]
     Active Substance: KETAMINE HYDROCHLORIDE
     Dosage: DAILY
     Route: 042
     Dates: start: 20240101
  2. ALCOHOL [Suspect]
     Active Substance: ALCOHOL
     Dosage: 0.5 L, DAILY
     Route: 048
     Dates: start: 20240101

REACTIONS (2)
  - Drug dependence [Unknown]
  - Hepatic cytolysis [Recovering/Resolving]

NARRATIVE: CASE EVENT DATE: 20250428
